FAERS Safety Report 11702454 (Version 1)
Quarter: 2015Q4

REPORT INFORMATION
  Report Type: Spontaneous
  Country: RU (occurrence: RU)
  Receive Date: 20151105
  Receipt Date: 20151105
  Transmission Date: 20160304
  Serious: Yes (Death, Hospitalization)
  Sender: FDA-Public Use
  Company Number: RU-ELI_LILLY_AND_COMPANY-RU201510009550

PATIENT
  Age: 70 Year
  Sex: Female

DRUGS (5)
  1. CUPRENIL [Concomitant]
     Dosage: 250 MG, QD
  2. FORSTEO [Suspect]
     Active Substance: TERIPARATIDE
     Indication: OSTEOPOROSIS
     Dosage: 20 UG, QD
     Route: 065
  3. LANTUS [Concomitant]
     Active Substance: INSULIN GLARGINE
  4. PREDNISOLONE. [Concomitant]
     Active Substance: PREDNISOLONE
     Dosage: 20 MG, QD
  5. HUMULIN R [Concomitant]
     Active Substance: INSULIN HUMAN

REACTIONS (3)
  - Gastrointestinal pain [Unknown]
  - Cerebrovascular accident [Fatal]
  - Faeces discoloured [Unknown]
